FAERS Safety Report 9230859 (Version 6)
Quarter: 2013Q4

REPORT INFORMATION
  Report Type: Spontaneous
  Country: BR (occurrence: BR)
  Receive Date: 20130415
  Receipt Date: 20131224
  Transmission Date: 20140711
  Serious: Yes (Disabling, Other)
  Sender: FDA-Public Use
  Company Number: PHHY2013BR035679

PATIENT
  Age: 82 Year
  Sex: Female

DRUGS (3)
  1. FORASEQ [Suspect]
     Indication: EMPHYSEMA
     Dosage: 1 DF, DAILY
     Route: 055
  2. FORASEQ [Suspect]
     Dosage: 2 DF, DAILY
     Route: 055
  3. FORASEQ [Suspect]
     Dosage: 2 DF, UNK

REACTIONS (13)
  - Deafness [Not Recovered/Not Resolved]
  - Labyrinthitis [Recovered/Resolved]
  - Cheilitis [Not Recovered/Not Resolved]
  - Tongue ulceration [Not Recovered/Not Resolved]
  - Cervical vertebral fracture [Recovering/Resolving]
  - Fall [Not Recovered/Not Resolved]
  - Pain [Not Recovered/Not Resolved]
  - Head injury [Not Recovered/Not Resolved]
  - Emphysema [Recovered/Resolved]
  - Incorrect dose administered [Unknown]
  - Device malfunction [Unknown]
  - Dyspnoea [Recovered/Resolved]
  - Cough [Recovered/Resolved]
